FAERS Safety Report 5373324-1 (Version None)
Quarter: 2007Q2

REPORT INFORMATION
  Report Type: 
  Country: None (occurrence: None)
  Receive Date: 20070626
  Receipt Date: 20070626
  Transmission Date: 20071010
  Serious: Yes (Death)
  Sender: FDA-Public Use
  Company Number: None

PATIENT
  Sex: Male
  Weight: 23.587 kg

DRUGS (8)
  1. FOCALIN [Suspect]
     Indication: ANXIETY
     Dosage: SEE OTHER FORM  PO
     Route: 048
  2. FOCALIN [Suspect]
     Indication: ATTENTION DEFICIT/HYPERACTIVITY DISORDER
     Dosage: SEE OTHER FORM  PO
     Route: 048
  3. FOCALIN [Suspect]
     Indication: AUTISM
     Dosage: SEE OTHER FORM  PO
     Route: 048
  4. FOCALIN XR [Suspect]
     Indication: ANXIETY
     Dosage: SEE OTHER FORM PO
     Route: 048
  5. FOCALIN XR [Suspect]
     Indication: ATTENTION DEFICIT/HYPERACTIVITY DISORDER
     Dosage: SEE OTHER FORM PO
     Route: 048
  6. FOCALIN XR [Suspect]
     Indication: AUTISM
     Dosage: SEE OTHER FORM PO
     Route: 048
  7. PROZAC [Suspect]
  8. RISPERDAL [Suspect]

REACTIONS (1)
  - CONVULSION [None]
